FAERS Safety Report 9210806 (Version 1)
Quarter: 2013Q2

REPORT INFORMATION
  Report Type: Spontaneous
  Country: GB (occurrence: GB)
  Receive Date: 20130404
  Receipt Date: 20130404
  Transmission Date: 20140414
  Serious: Yes (Other)
  Sender: FDA-Public Use
  Company Number: PHHY2013GB030560

PATIENT
  Age: 50 Year
  Sex: Female
  Weight: 79.37 kg

DRUGS (4)
  1. FLUOXETINE [Suspect]
     Indication: DEPRESSION
     Dosage: 1 DF, QD
     Route: 048
     Dates: start: 20130215
  2. OMEPRAZOLE [Concomitant]
  3. REGURIN [Concomitant]
  4. PEPTAC [Concomitant]
     Route: 048

REACTIONS (13)
  - Feeling jittery [Recovered/Resolved with Sequelae]
  - Abnormal behaviour [Unknown]
  - Tinnitus [Not Recovered/Not Resolved]
  - Asthenia [Not Recovered/Not Resolved]
  - Feeling abnormal [Unknown]
  - Decreased appetite [Unknown]
  - Fatigue [Unknown]
  - Anxiety [Recovered/Resolved with Sequelae]
  - Dizziness [Not Recovered/Not Resolved]
  - Nausea [Unknown]
  - Tremor [Unknown]
  - Tension headache [Not Recovered/Not Resolved]
  - Headache [Not Recovered/Not Resolved]
